FAERS Safety Report 4998659-3 (Version None)
Quarter: 2006Q2

REPORT INFORMATION
  Report Type: 
  Country: None (occurrence: None)
  Receive Date: 20060510
  Receipt Date: 20041221
  Transmission Date: 20061013
  Serious: Yes (Death)
  Sender: FDA-Public Use
  Company Number: PHHO2004JP18218

PATIENT
  Age: 66 Year
  Sex: Male
  Weight: 59 kg

DRUGS (4)
  1. DIGOXIN [Suspect]
     Indication: ATRIAL FIBRILLATION
     Dosage: 0.25MG/DAILY
     Route: 048
     Dates: start: 20001030, end: 20040805
  2. SELOKEN [Suspect]
     Indication: ATRIAL FIBRILLATION
     Dosage: 80MG/DAILY
     Dates: start: 20010305, end: 20040805
  3. BUFFERIN [Suspect]
     Indication: ATRIAL FIBRILLATION
     Dosage: 81MG/DAILY
     Route: 048
     Dates: start: 20001030, end: 20040805
  4. DIOVAN [Suspect]
     Indication: HYPERTENSION
     Dosage: 80 MG, QD
     Route: 048
     Dates: start: 20030901, end: 20040805

REACTIONS (4)
  - HYPERTENSION [None]
  - LARGE INTESTINE CARCINOMA [None]
  - PERITONEAL CARCINOMA [None]
  - PERITONITIS [None]
